APPROVED DRUG PRODUCT: DIVALPROEX SODIUM
Active Ingredient: DIVALPROEX SODIUM
Strength: EQ 125MG VALPROIC ACID
Dosage Form/Route: CAPSULE, DELAYED REL PELLETS;ORAL
Application: A217358 | Product #001 | TE Code: AB
Applicant: MANKIND PHARMA LTD
Approved: Aug 12, 2025 | RLD: No | RS: No | Type: RX